FAERS Safety Report 11598131 (Version 1)
Quarter: 2015Q3

REPORT INFORMATION
  Report Type: Spontaneous
  Country: US (occurrence: US)
  Receive Date: 20150916
  Receipt Date: 20150916
  Transmission Date: 20151125
  Serious: No
  Sender: FDA-Public Use
  Company Number: US-ELI_LILLY_AND_COMPANY-US200801000471

PATIENT
  Age: 75 Year
  Sex: Female
  Weight: 44.9 kg

DRUGS (6)
  1. CALCIUM [Concomitant]
     Active Substance: CALCIUM
     Dosage: 1500 MG, DAILY (1/D)
  2. FORTEO [Suspect]
     Active Substance: TERIPARATIDE
     Indication: OSTEOPOROSIS
     Dosage: 20 UG, UNK
     Dates: start: 20070615, end: 20071228
  3. ARMOUR THYROID [Concomitant]
     Active Substance: THYROID, PORCINE\THYROID, UNSPECIFIED
  4. GLUCOSAMINE [Concomitant]
     Active Substance: GLUCOSAMINE
  5. CO-Q10 [Concomitant]
  6. MULTIVITAMIN [Concomitant]
     Active Substance: VITAMINS

REACTIONS (2)
  - Blood calcium increased [Recovering/Resolving]
  - Blood parathyroid hormone [Not Recovered/Not Resolved]

NARRATIVE: CASE EVENT DATE: 200712
